FAERS Safety Report 18417295 (Version 2)
Quarter: 2020Q4

REPORT INFORMATION
  Report Type: Spontaneous
  Country: US (occurrence: US)
  Receive Date: 20201022
  Receipt Date: 20201202
  Transmission Date: 20210114
  Serious: Yes (Disabling)
  Sender: FDA-Public Use
  Company Number: 2020SGN02222

PATIENT
  Sex: Female

DRUGS (2)
  1. CAPECITABINE. [Concomitant]
     Active Substance: CAPECITABINE
     Indication: BREAST CANCER FEMALE
  2. TUKYSA [Suspect]
     Active Substance: TUCATINIB
     Indication: BREAST CANCER FEMALE
     Dosage: 200 MG, BID

REACTIONS (11)
  - Cerebrovascular accident [Unknown]
  - Stomatitis [Unknown]
  - Malaise [Unknown]
  - Chapped lips [Unknown]
  - Fatigue [Unknown]
  - Dry eye [Unknown]
  - Visual impairment [Unknown]
  - Vision blurred [Unknown]
  - Eye pruritus [Unknown]
  - Oral pain [Unknown]
  - Nausea [Unknown]
